FAERS Safety Report 18298018 (Version 1)
Quarter: 2020Q3

REPORT INFORMATION
  Report Type: Other
  Country: CA (occurrence: CA)
  Receive Date: 20200923
  Receipt Date: 20200923
  Transmission Date: 20201103
  Serious: Yes (Other)
  Sender: FDA-Public Use
  Company Number: CA-CELLTRION INC.-2020CA026130

PATIENT

DRUGS (18)
  1. BISOPROLOL [Concomitant]
     Active Substance: BISOPROLOL
     Indication: BLOOD PRESSURE MEASUREMENT
  2. OMEGA 3 [DOCOSAHEXAENOIC ACID;EICOSAPENTAENOIC ACID] [Concomitant]
     Active Substance: DOCONEXENT\ICOSAPENT
  3. FOLIC ACID. [Concomitant]
     Active Substance: FOLIC ACID
  4. METHYLSULFONYLMETHANE [Concomitant]
     Active Substance: DIMETHYL SULFONE
  5. SOLU?CORTEF [Concomitant]
     Active Substance: HYDROCORTISONE SODIUM SUCCINATE
     Dosage: 100.0 MILLIGRAM
     Route: 042
  6. METHOTREXATE. [Concomitant]
     Active Substance: METHOTREXATE
  7. VITAMIN B [Concomitant]
     Active Substance: VITAMIN B
  8. ACLASTA [Concomitant]
     Active Substance: ZOLEDRONIC ACID
  9. PLENDIL [Concomitant]
     Active Substance: FELODIPINE
     Indication: BLOOD PRESSURE MEASUREMENT
  10. TEMAZEPAM. [Concomitant]
     Active Substance: TEMAZEPAM
  11. VITAMIN C [Concomitant]
     Active Substance: ASCORBIC ACID
  12. CELEBREX [Concomitant]
     Active Substance: CELECOXIB
  13. DIPHENHYDRAMINE HYDROCHLORIDE. [Concomitant]
     Active Substance: DIPHENHYDRAMINE HYDROCHLORIDE
     Dosage: 50.0 MILLIGRAM
     Route: 048
  14. METHYLPREDNISOLONE. [Concomitant]
     Active Substance: METHYLPREDNISOLONE
     Dosage: 100.0 MILLIGRAM
     Route: 042
  15. VITAMIN A [RETINOL] [Concomitant]
     Active Substance: RETINOL
  16. RITUXIMAB (UNKNOWN) [Suspect]
     Active Substance: RITUXIMAB
     Indication: RHEUMATOID ARTHRITIS
     Dosage: 1000.0 MILLIGRAM
     Route: 042
  17. ACETAMINOPHEN. [Concomitant]
     Active Substance: ACETAMINOPHEN
     Indication: PREMEDICATION
     Dosage: 1000.0 MILLIGRAM
     Route: 048
  18. PREDNISONE. [Concomitant]
     Active Substance: PREDNISONE
     Dosage: 50.0 MILLIGRAM
     Route: 048

REACTIONS (1)
  - Atrial fibrillation [Unknown]
